FAERS Safety Report 5117142-8 (Version None)
Quarter: 2006Q3

REPORT INFORMATION
  Report Type: 
  Country: None (occurrence: None)
  Receive Date: 20060731
  Receipt Date: 20060403
  Transmission Date: 20061208
  Serious: No
  Sender: FDA-Public Use
  Company Number: 2006BL001700

PATIENT
  Age: 47 Year
  Sex: Male

DRUGS (3)
  1. RETISERT [Suspect]
     Indication: UVEITIS
     Dosage: 1 DOSE FORM; LEFT EYE
     Dates: start: 20051214
  2. PRED FORTE [Concomitant]
  3. ATROPINE [Concomitant]

REACTIONS (5)
  - EYE INFLAMMATION [None]
  - EYE SWELLING [None]
  - INTRAOCULAR PRESSURE DECREASED [None]
  - VISION BLURRED [None]
  - VITREOUS FLOATERS [None]
